FAERS Safety Report 10193464 (Version 1)
Quarter: 2014Q2

REPORT INFORMATION
  Report Type: Spontaneous
  Country: US (occurrence: US)
  Receive Date: 20140524
  Receipt Date: 20140524
  Transmission Date: 20141212
  Serious: No
  Sender: FDA-Public Use
  Company Number: US-SA-2013SA123378

PATIENT
  Age: 74 Year
  Sex: Male

DRUGS (2)
  1. LANTUS SOLOSTAR [Suspect]
     Indication: TYPE 2 DIABETES MELLITUS
     Dosage: 15U IN AM / 25U IN PM
     Route: 058
     Dates: start: 201302
  2. SOLOSTAR [Concomitant]
     Indication: TYPE 2 DIABETES MELLITUS
     Dosage: 15U IN AM / 25U IN PM
     Dates: start: 201302

REACTIONS (2)
  - Diarrhoea [Unknown]
  - Blood glucose increased [Unknown]
